FAERS Safety Report 20592490 (Version 5)
Quarter: 2022Q3

REPORT INFORMATION
  Report Type: Report from Study
  Country: US (occurrence: US)
  Receive Date: 20220314
  Receipt Date: 20220921
  Transmission Date: 20221027
  Serious: Yes (Other)
  Sender: FDA-Public Use
  Company Number: US-BIOGEN-2022BI01105020

PATIENT
  Age: 60 Year
  Sex: Male

DRUGS (9)
  1. ADUHELM [Suspect]
     Active Substance: ADUCANUMAB-AVWA
     Indication: Dementia Alzheimer^s type
     Route: 050
     Dates: start: 20211214
  2. ADUHELM [Suspect]
     Active Substance: ADUCANUMAB-AVWA
     Dosage: INFUSE 6 MG/KG INTRAVENOUSLY AT WEEKS 16 AND 20. TO BE ADMINISTERED IN OFFICE
     Route: 050
  3. ADUHELM [Suspect]
     Active Substance: ADUCANUMAB-AVWA
     Dosage: INFUSE 10 MG/KG INTRAVENOUSLY AT WEEKS 24 AND THEN AT EVERY 4 WEEKS THEREAFTER. TO BE ADMINISTERE...
     Route: 050
  4. ADUHELM [Suspect]
     Active Substance: ADUCANUMAB-AVWA
     Dosage: INFUSE 10 MG/KG INTRAVENOUSLY AT WEEKS 24 AND THEN AT EVERY 4 WEEKS THEREAFTER. TO BE ADMINISTERE...
     Route: 050
  5. DULOXETINE HYDROCHLORIDE [Concomitant]
     Active Substance: DULOXETINE HYDROCHLORIDE
     Indication: Product used for unknown indication
     Route: 050
  6. DONEPEZIL HYDROCHLORIDE [Concomitant]
     Active Substance: DONEPEZIL HYDROCHLORIDE
     Indication: Product used for unknown indication
     Route: 050
  7. ASPIRIN [Concomitant]
     Active Substance: ASPIRIN
     Indication: Product used for unknown indication
     Route: 050
  8. METFORMIN HYDROCHLORIDE [Concomitant]
     Active Substance: METFORMIN HYDROCHLORIDE
     Indication: Product used for unknown indication
     Route: 050
  9. B1 HIGH POTENCY [Concomitant]
     Indication: Product used for unknown indication
     Route: 050

REACTIONS (6)
  - Prostate cancer [Unknown]
  - Prostatomegaly [Unknown]
  - Memory impairment [Unknown]
  - Panic attack [Unknown]
  - Hyperhidrosis [Unknown]
  - Confusional state [Unknown]

NARRATIVE: CASE EVENT DATE: 20220301
